FAERS Safety Report 25225634 (Version 2)
Quarter: 2025Q2

REPORT INFORMATION
  Report Type: Spontaneous
  Country: GB (occurrence: GB)
  Receive Date: 20250422
  Receipt Date: 20250430
  Transmission Date: 20250717
  Serious: Yes (Death, Life-Threatening, Other)
  Sender: PFIZER
  Company Number: None

PATIENT
  Sex: Female

DRUGS (2)
  1. DOXYCYCLINE [Suspect]
     Active Substance: DOXYCYCLINE
  2. FLUCLOXACILLIN [Concomitant]
     Active Substance: FLUCLOXACILLIN

REACTIONS (4)
  - SJS-TEN overlap [Fatal]
  - Hyperkeratosis [Unknown]
  - Skin exfoliation [Unknown]
  - Rash pruritic [Unknown]

NARRATIVE: CASE EVENT DATE: 20250312
